FAERS Safety Report 18224137 (Version 2)
Quarter: 2020Q3

REPORT INFORMATION
  Report Type: Spontaneous
  Country: US (occurrence: US)
  Receive Date: 20200902
  Receipt Date: 20200921
  Transmission Date: 20201103
  Serious: No
  Sender: FDA-Public Use
  Company Number: US-PFIZER INC-2020339079

PATIENT
  Age: 32 Year
  Sex: Male
  Weight: 141.52 kg

DRUGS (1)
  1. LIDOCAINE HCL [Suspect]
     Active Substance: LIDOCAINE HYDROCHLORIDE
     Indication: LOCAL ANAESTHESIA
     Dosage: RECEIVED UP TO 20 ML INJECTED UNDER THE SKIN AROUND THE TESTICLE AREA (10?20 CC) (200MG/20ML)
     Dates: start: 20200827

REACTIONS (1)
  - Drug ineffective [Unknown]

NARRATIVE: CASE EVENT DATE: 20200827
